FAERS Safety Report 9103244 (Version 5)
Quarter: 2014Q1

REPORT INFORMATION
  Report Type: Spontaneous
  Country: US (occurrence: US)
  Receive Date: 20130219
  Receipt Date: 20140121
  Transmission Date: 20141002
  Serious: Yes (Hospitalization)
  Sender: FDA-Public Use
  Company Number: US-PFIZER INC-2013062842

PATIENT
  Age: 62 Year
  Sex: Male
  Weight: 107.4 kg

DRUGS (6)
  1. LYRICA [Suspect]
     Indication: NEURALGIA
     Dosage: 150 MG, UNK
  2. LYRICA [Suspect]
     Indication: NERVE INJURY
     Dosage: 200 MG, UNK
  3. LYRICA [Suspect]
     Dosage: UNK, 2X/DAY
     Dates: start: 2012
  4. LYRICA [Suspect]
     Dosage: UNK
     Dates: end: 2013
  5. OXYCODONE [Concomitant]
     Indication: NECK PAIN
     Dosage: 500 MG, 2X/DAY
  6. OXYCODONE [Concomitant]
     Indication: BACK PAIN

REACTIONS (6)
  - Pain in extremity [Unknown]
  - Blister [Unknown]
  - Infection [Unknown]
  - Arthropathy [Unknown]
  - Drug ineffective [Unknown]
  - Pain [Unknown]
